FAERS Safety Report 8237811-0 (Version None)
Quarter: 2012Q1

REPORT INFORMATION
  Report Type: 
  Country: None (occurrence: None)
  Receive Date: 20120322
  Receipt Date: 20120312
  Transmission Date: 20120608
  Serious: Yes (Other)
  Sender: FDA-Public Use
  Company Number: 2012P1009594

PATIENT
  Age: 63 Year
  Sex: Male

DRUGS (19)
  1. NEBULIZER [Concomitant]
  2. CYCLOSPORINE [Concomitant]
  3. IPRATROPIUM BROMIDE [Concomitant]
  4. METOPROLOL SUCCINATE [Concomitant]
  5. OMEPRAZOLE [Concomitant]
  6. SULFAMETHOXAZOLE AND TRIMETHOPRIM [Concomitant]
  7. CIPROFLOXACIN [Suspect]
     Indication: BRONCHIECTASIS
     Dosage: 500 MG;BID
     Dates: start: 20110301, end: 20110301
  8. CIPROFLOXACIN [Suspect]
     Indication: BRONCHITIS
     Dosage: 500 MG;BID
     Dates: start: 20110301, end: 20110301
  9. CIPROFLOXACIN [Suspect]
     Indication: BRONCHIECTASIS
     Dosage: 500 MG;BID
     Dates: start: 20100601, end: 20100601
  10. CIPROFLOXACIN [Suspect]
     Indication: BRONCHITIS
     Dosage: 500 MG;BID
     Dates: start: 20100601, end: 20100601
  11. CIPROFLOXACIN [Suspect]
     Indication: BRONCHIECTASIS
     Dosage: 500 MG;BID
     Dates: start: 20110401, end: 20110526
  12. CIPROFLOXACIN [Suspect]
     Indication: BRONCHITIS
     Dosage: 500 MG;BID
     Dates: start: 20110401, end: 20110526
  13. CIPROFLOXACIN [Suspect]
     Indication: BRONCHIECTASIS
     Dosage: 500 MG;BID
     Dates: start: 20100901, end: 20100901
  14. CIPROFLOXACIN [Suspect]
     Indication: BRONCHITIS
     Dosage: 500 MG;BID
     Dates: start: 20100901, end: 20100901
  15. ARFORMOTEROL TARTRATE [Concomitant]
  16. AZATHIOPRINE [Concomitant]
  17. EZETIMIBE [Concomitant]
  18. ITRACONAZOLE [Concomitant]
  19. PREDNISONE TAB [Concomitant]

REACTIONS (9)
  - BRONCHITIS [None]
  - MYALGIA [None]
  - ASTHENIA [None]
  - MUSCULAR WEAKNESS [None]
  - ARTHRALGIA [None]
  - BLOOD CREATININE INCREASED [None]
  - DISEASE RECURRENCE [None]
  - FATIGUE [None]
  - RENAL FAILURE ACUTE [None]
